FAERS Safety Report 9633017 (Version 1)
Quarter: 2013Q4

REPORT INFORMATION
  Report Type: Spontaneous
  Country: FR (occurrence: FR)
  Receive Date: 20131018
  Receipt Date: 20131018
  Transmission Date: 20140711
  Serious: Yes (Death, Other)
  Sender: FDA-Public Use
  Company Number: FR-BAXTER-2013BAX040770

PATIENT
  Age: 71 Year
  Sex: 0
  Weight: 61 kg

DRUGS (2)
  1. MANNITOL [Suspect]
     Indication: CEREBRAL INFARCTION
     Route: 065
  2. FUROSEMIDE [Suspect]
     Indication: CEREBRAL INFARCTION
     Route: 065

REACTIONS (2)
  - Gastroduodenitis haemorrhagic [Fatal]
  - Renal failure acute [Unknown]
